APPROVED DRUG PRODUCT: ALBENDAZOLE
Active Ingredient: ALBENDAZOLE
Strength: 200MG
Dosage Form/Route: TABLET;ORAL
Application: A215652 | Product #001 | TE Code: AB
Applicant: ALEMBIC PHARMACEUTICALS LTD
Approved: Sep 4, 2024 | RLD: No | RS: No | Type: RX